FAERS Safety Report 21604680 (Version 4)
Quarter: 2025Q2

REPORT INFORMATION
  Report Type: Spontaneous
  Country: DE (occurrence: DE)
  Receive Date: 20221116
  Receipt Date: 20250526
  Transmission Date: 20250717
  Serious: Yes (Hospitalization, Other)
  Sender: TEVA
  Company Number: DE-ALLERGAN-2237222US

PATIENT
  Age: 45 Year
  Sex: Male

DRUGS (3)
  1. ACITRETIN [Suspect]
     Active Substance: ACITRETIN
     Indication: Pityriasis rubra pilaris
     Dosage: 50 MG (0.66 MG/KG BODY WEIGHT)
     Route: 065
  2. ACITRETIN [Suspect]
     Active Substance: ACITRETIN
     Indication: Pityriasis rubra pilaris
     Route: 065
     Dates: start: 20170609, end: 201709
  3. CORTICOSTEROID NOS [Concomitant]
     Active Substance: CORTICOSTEROID NOS
     Indication: Pityriasis rubra pilaris
     Dosage: DOSAGE TEXT: UNK, BID , TOPICAL
     Route: 003

REACTIONS (3)
  - Drug-induced liver injury [Recovered/Resolved]
  - Alopecia [Unknown]
  - Lip dry [Unknown]
